FAERS Safety Report 23556980 (Version 1)
Quarter: 2024Q1

REPORT INFORMATION
  Report Type: Spontaneous
  Country: CA (occurrence: CA)
  Receive Date: 20240223
  Receipt Date: 20240223
  Transmission Date: 20240410
  Serious: Yes (Other)
  Sender: FDA-Public Use
  Company Number: None

PATIENT
  Age: 74 Year
  Sex: Male

DRUGS (5)
  1. CABAZITAXEL [Suspect]
     Active Substance: CABAZITAXEL
     Indication: Prostate cancer
  2. DOCETAXEL [Suspect]
     Active Substance: DOCETAXEL\DOCETAXEL ANHYDROUS
     Indication: Prostate cancer
  3. DOCETAXEL [Suspect]
     Active Substance: DOCETAXEL\DOCETAXEL ANHYDROUS
  4. DOCETAXEL [Suspect]
     Active Substance: DOCETAXEL\DOCETAXEL ANHYDROUS
  5. GOSERELIN [Concomitant]
     Active Substance: GOSERELIN
     Indication: Product used for unknown indication

REACTIONS (2)
  - Metastases to liver [Unknown]
  - Drug ineffective [Unknown]
